FAERS Safety Report 9852705 (Version 1)
Quarter: 2014Q1

REPORT INFORMATION
  Report Type: Spontaneous
  Country: US (occurrence: None)
  Receive Date: 20140127
  Receipt Date: 20140127
  Transmission Date: 20141002
  Serious: Yes (Death)
  Sender: FDA-Public Use
  Company Number: 2014AP000696

PATIENT
  Age: 49 Year
  Sex: Male

DRUGS (8)
  1. AMLODIPINE BESYLATE TABLETS [Suspect]
  2. TRAZODONE HYDROCHLORIDE TABLETS [Suspect]
  3. RISPERIDONE [Suspect]
  4. COCAINE [Suspect]
  5. BENZTROPINE [Suspect]
  6. BENZONATATE [Suspect]
  7. LISINOPRIL TABLETS [Suspect]
  8. CHLORTHALIDONE [Suspect]

REACTIONS (1)
  - Completed suicide [None]
